FAERS Safety Report 12336099 (Version 1)
Quarter: 2016Q2

REPORT INFORMATION
  Report Type: Spontaneous
  Country: US (occurrence: None)
  Receive Date: 20160504
  Receipt Date: 20160504
  Transmission Date: 20160815
  Serious: Yes (Disabling, Other)
  Sender: FDA-Public Use
  Company Number: None

PATIENT
  Age: 77 Year
  Sex: Male
  Weight: 74.84 kg

DRUGS (13)
  1. CINNAMON. [Concomitant]
     Active Substance: CINNAMON
  2. BABY ASPIRIN [Concomitant]
     Active Substance: ASPIRIN
  3. ALFALFA [Concomitant]
     Active Substance: ALFALFA
  4. SAW PALMETTO [Concomitant]
     Active Substance: SAW PALMETTO
  5. ELIQUIS [Suspect]
     Active Substance: APIXABAN
     Indication: CEREBROVASCULAR ACCIDENT PROPHYLAXIS
     Dosage: 1 TABLET(S) TWICE A DAY TAKEN BY MOUTH
     Route: 048
     Dates: start: 20150521, end: 20160408
  6. ALDACTONE [Concomitant]
     Active Substance: SPIRONOLACTONE
  7. COREG [Concomitant]
     Active Substance: CARVEDILOL
  8. ALTACE [Concomitant]
     Active Substance: RAMIPRIL
  9. CARDURA [Concomitant]
     Active Substance: DOXAZOSIN MESYLATE
  10. ZYRTEC [Concomitant]
     Active Substance: CETIRIZINE HYDROCHLORIDE
  11. GINKGO BILOBA [Concomitant]
     Active Substance: GINKGO
  12. AMIODARONE [Concomitant]
     Active Substance: AMIODARONE
  13. MULTIPLE VITAMINS [Concomitant]
     Active Substance: VITAMINS

REACTIONS (3)
  - Joint effusion [None]
  - Haemorrhage [None]
  - Pain in extremity [None]

NARRATIVE: CASE EVENT DATE: 20160130
